FAERS Safety Report 15369720 (Version 1)
Quarter: 2018Q3

REPORT INFORMATION
  Report Type: Spontaneous
  Country: US (occurrence: US)
  Receive Date: 20180904
  Receipt Date: 20180904
  Transmission Date: 20181010
  Serious: Yes (Death)
  Sender: FDA-Public Use
  Company Number: None

PATIENT
  Age: 71 Year
  Sex: Female
  Weight: 89.55 kg

DRUGS (2)
  1. NOVOLOG [Suspect]
     Active Substance: INSULIN ASPART
     Dosage: ?          QUANTITY:2 INJECTION(S);?
     Route: 030
  2. HUMULIN NOS [Suspect]
     Active Substance: INSULIN HUMAN
     Indication: TYPE 2 DIABETES MELLITUS
     Route: 061

REACTIONS (4)
  - Necrotising fasciitis [None]
  - Dyspnoea [None]
  - Coma [None]
  - Sepsis [None]

NARRATIVE: CASE EVENT DATE: 20170706
